FAERS Safety Report 5471161-0 (Version None)
Quarter: 2007Q3

REPORT INFORMATION
  Report Type: 
  Country: None (occurrence: None)
  Receive Date: 20070928
  Receipt Date: 20070914
  Transmission Date: 20080115
  Serious: Yes (Disabling)
  Sender: FDA-Public Use
  Company Number: JP-ROCHE-511771

PATIENT
  Age: 68 Year
  Sex: Female
  Weight: 47 kg

DRUGS (19)
  1. XELODA [Suspect]
     Indication: BREAST CANCER METASTATIC
     Dosage: DRUG REPORTED AS XELODA 300
     Route: 048
     Dates: start: 20070605, end: 20070724
  2. FERROMIA [Concomitant]
     Route: 048
     Dates: start: 20070515
  3. PYDOXAL [Concomitant]
     Route: 048
     Dates: start: 20070605, end: 20070730
  4. SELBEX [Concomitant]
     Route: 048
     Dates: start: 20070612
  5. LOXONIN [Concomitant]
     Route: 048
     Dates: start: 20070612
  6. NOVAMIN [Concomitant]
     Route: 048
     Dates: start: 20070626
  7. MAGMITT [Concomitant]
     Route: 048
     Dates: start: 20070626
  8. MS CONTIN [Concomitant]
     Route: 048
     Dates: start: 20070626
  9. LAXOBERON [Concomitant]
     Dosage: DOSAGE ADJUSTED.
     Route: 048
     Dates: start: 20070703, end: 20070730
  10. AMOBAN [Concomitant]
     Dosage: DRUG NAME REPORTED AS AMOBAN TABLETS 7.5
     Route: 048
     Dates: start: 20070720
  11. PURSENNID [Concomitant]
     Route: 048
     Dates: start: 20070723, end: 20070723
  12. NITROGLYCERIN [Concomitant]
     Dosage: DRUG NAME REPORTED AS NITROPEN.
     Route: 060
     Dates: start: 20070723, end: 20070723
  13. ADRIAMYCIN PFS [Concomitant]
     Indication: CHEMOTHERAPY
     Dates: start: 20050614, end: 20050816
  14. CYCLOPHOSPHAMIDE [Concomitant]
     Indication: CHEMOTHERAPY
     Dates: start: 20050614, end: 20050616
  15. TAXOL [Concomitant]
     Indication: CHEMOTHERAPY
     Dates: start: 20051004, end: 20060131
  16. TAXOTERE [Concomitant]
     Dates: start: 20060530, end: 20060718
  17. ARIMIDEX [Concomitant]
     Dates: start: 20060725, end: 20061008
  18. NAVELBINE [Concomitant]
     Dates: start: 20061010, end: 20070522
  19. NOLVADEX [Concomitant]
     Dates: start: 20061220, end: 20070214

REACTIONS (4)
  - ABNORMAL SENSATION IN EYE [None]
  - CORNEAL DISORDER [None]
  - EYELID DISORDER [None]
  - VISUAL ACUITY REDUCED [None]
